FAERS Safety Report 8223585-6 (Version None)
Quarter: 2012Q1

REPORT INFORMATION
  Report Type: 
  Country: None (occurrence: None)
  Receive Date: 20120316
  Receipt Date: 20120306
  Transmission Date: 20120608
  Serious: Yes (Other)
  Sender: FDA-Public Use
  Company Number: 1219109

PATIENT
  Age: 61 Year
  Sex: Female

DRUGS (9)
  1. CARBOPLATIN [Suspect]
     Indication: BREAST CANCER
     Dosage: SEE IMAGE
     Route: 042
     Dates: start: 20120205, end: 20120205
  2. CARBOPLATIN [Suspect]
     Indication: OVARIAN CANCER
     Dosage: SEE IMAGE
     Route: 042
     Dates: start: 20120205, end: 20120205
  3. CARBOPLATIN [Suspect]
     Indication: BREAST CANCER
     Dosage: SEE IMAGE
     Route: 042
     Dates: start: 20120205, end: 20120205
  4. CARBOPLATIN [Suspect]
     Indication: OVARIAN CANCER
     Dosage: SEE IMAGE
     Route: 042
     Dates: start: 20120205, end: 20120205
  5. CARBOPLATIN [Suspect]
     Indication: BREAST CANCER
     Dosage: SEE IMAGE
     Route: 042
     Dates: start: 20120205, end: 20120205
  6. CARBOPLATIN [Suspect]
     Indication: OVARIAN CANCER
     Dosage: SEE IMAGE
     Route: 042
     Dates: start: 20120205, end: 20120205
  7. CARBOPLATIN [Suspect]
     Indication: BREAST CANCER
     Dosage: SEE IMAGE
     Route: 042
     Dates: start: 20120205, end: 20120205
  8. CARBOPLATIN [Suspect]
     Indication: OVARIAN CANCER
     Dosage: SEE IMAGE
     Route: 042
     Dates: start: 20120205, end: 20120205
  9. GEMCITABINE [Concomitant]

REACTIONS (5)
  - CARDIAC ARREST [None]
  - FALL [None]
  - INFUSION RELATED REACTION [None]
  - UNRESPONSIVE TO STIMULI [None]
  - ANAPHYLACTIC REACTION [None]
